FAERS Safety Report 4267250-9 (Version None)
Quarter: 2004Q1

REPORT INFORMATION
  Report Type: 
  Country: None (occurrence: None)
  Receive Date: 20040107
  Receipt Date: 20031226
  Transmission Date: 20041129
  Serious: Yes (Death)
  Sender: FDA-Public Use
  Company Number: HQWYE541711DEC03

PATIENT
  Age: 71 Year
  Sex: Female

DRUGS (2)
  1. CORDARONE [Suspect]
     Indication: ATRIAL FIBRILLATION
  2. WARFARIN SODIUM [Concomitant]

REACTIONS (19)
  - ACUTE RESPIRATORY DISTRESS SYNDROME [None]
  - ATRIAL FIBRILLATION [None]
  - BRONCHIECTASIS [None]
  - BRONCHOPNEUMONIA [None]
  - COUGH [None]
  - CREPITATIONS [None]
  - DRUG TOXICITY [None]
  - DYSPNOEA [None]
  - EXERCISE TOLERANCE DECREASED [None]
  - HAEMOGLOBIN DECREASED [None]
  - HYPERCAPNIA [None]
  - HYPOTENSION [None]
  - LOSS OF CONSCIOUSNESS [None]
  - NEOPLASM [None]
  - PLEURAL FIBROSIS [None]
  - PULMONARY FIBROSIS [None]
  - PYREXIA [None]
  - RESTRICTIVE PULMONARY DISEASE [None]
  - WEIGHT DECREASED [None]
